FAERS Safety Report 5968591-7 (Version None)
Quarter: 2008Q4

REPORT INFORMATION
  Report Type: 
  Country: None (occurrence: None)
  Receive Date: 20081126
  Receipt Date: 20081119
  Transmission Date: 20090506
  Serious: Yes (Hospitalization)
  Sender: FDA-Public Use
  Company Number: CG-MERCK-0811USA03694

PATIENT
  Age: 10 Year
  Sex: Female
  Weight: 21 kg

DRUGS (1)
  1. STROMECTOL [Suspect]
     Indication: ONCHOCERCIASIS
     Route: 048
     Dates: start: 20080715, end: 20080715

REACTIONS (9)
  - ANOREXIA [None]
  - CONJUNCTIVAL HAEMORRHAGE [None]
  - DIARRHOEA [None]
  - ENOPHTHALMOS [None]
  - PYREXIA [None]
  - TONGUE DRY [None]
  - URTICARIA [None]
  - VOMITING [None]
  - WEIGHT DECREASED [None]
